FAERS Safety Report 19533182 (Version 1)
Quarter: 2021Q3

REPORT INFORMATION
  Report Type: Spontaneous
  Country: PL (occurrence: PL)
  Receive Date: 20210713
  Receipt Date: 20210713
  Transmission Date: 20211014
  Serious: Yes (Hospitalization, Other)
  Sender: FDA-Public Use
  Company Number: PL-MYLANLABS-2021M1040495

PATIENT
  Age: 60 Year
  Sex: Female

DRUGS (4)
  1. LURASIDONE [Concomitant]
     Active Substance: LURASIDONE
     Indication: SCHIZOPHRENIA
     Dosage: UNK
     Dates: start: 2019
  2. ZIPRASIDONE. [Suspect]
     Active Substance: ZIPRASIDONE
     Indication: SCHIZOPHRENIA
     Dosage: 160 MG/D
     Dates: start: 2016
  3. ARIPIPRAZOLE. [Suspect]
     Active Substance: ARIPIPRAZOLE
     Indication: SCHIZOPHRENIA
     Dosage: 30 MG/DAY
     Dates: start: 2016
  4. ZUCLOPENTHIXOL DECANOATE [Concomitant]
     Active Substance: ZUCLOPENTHIXOL DECANOATE
     Indication: SCHIZOPHRENIA
     Dosage: 300 MG EVERY 14 DAYS
     Dates: start: 2016, end: 2019

REACTIONS (8)
  - Anxiety [Recovering/Resolving]
  - Delusion [Recovering/Resolving]
  - Persecutory delusion [Recovering/Resolving]
  - Fear [Recovering/Resolving]
  - Psychotic symptom [Recovering/Resolving]
  - Malaise [Unknown]
  - Overweight [Recovering/Resolving]
  - Hallucination, auditory [Recovering/Resolving]

NARRATIVE: CASE EVENT DATE: 2016
